FAERS Safety Report 12118875 (Version 1)
Quarter: 2016Q1

REPORT INFORMATION
  Report Type: Spontaneous
  Country: US (occurrence: None)
  Receive Date: 20160225
  Receipt Date: 20160225
  Transmission Date: 20160526
  Serious: Yes (Other)
  Sender: FDA-Public Use
  Company Number: None

PATIENT
  Age: 67 Year
  Sex: Female
  Weight: 56.7 kg

DRUGS (6)
  1. OXYBUTYNIN ER [Concomitant]
     Active Substance: OXYBUTYNIN
  2. SINGULAIR [Concomitant]
     Active Substance: MONTELUKAST SODIUM
  3. LOSARTAN 50 MG. [Suspect]
     Active Substance: LOSARTAN
     Dosage: 1 TAB PER DAY ONCE DAILY
     Route: 048
  4. PREMPRO [Concomitant]
     Active Substance: ESTROGENS, CONJUGATED\MEDROXYPROGESTERONE ACETATE
  5. MELOXICAM. [Concomitant]
     Active Substance: MELOXICAM
  6. ASPRIN 81 MG [Concomitant]

REACTIONS (3)
  - Cough [None]
  - Wheezing [None]
  - Feeling abnormal [None]

NARRATIVE: CASE EVENT DATE: 20160224
